FAERS Safety Report 15278554 (Version 4)
Quarter: 2020Q3

REPORT INFORMATION
  Report Type: Spontaneous
  Country: US (occurrence: US)
  Receive Date: 20180815
  Receipt Date: 20200716
  Transmission Date: 20201102
  Serious: Yes (Life-Threatening, Hospitalization, Other)
  Sender: FDA-Public Use
  Company Number: US-AMGEN-USASP2018110923

PATIENT
  Age: 69 Year
  Sex: Female
  Weight: 65.76 kg

DRUGS (5)
  1. PANTOPRAZOLE [Concomitant]
     Active Substance: PANTOPRAZOLE
     Dosage: UNK
  2. PROLIA [Suspect]
     Active Substance: DENOSUMAB
     Indication: OSTEOPOROSIS POSTMENOPAUSAL
     Dosage: UNK UNK, Q6MO
     Route: 065
     Dates: start: 201603
  3. FAMOTIDINE. [Concomitant]
     Active Substance: FAMOTIDINE
     Dosage: UNK
  4. VITAMIN D [COLECALCIFEROL] [Concomitant]
     Active Substance: CHOLECALCIFEROL
     Dosage: UNK
  5. PROLIA [Suspect]
     Active Substance: DENOSUMAB
     Indication: BONE DISORDER

REACTIONS (35)
  - Pain [Not Recovered/Not Resolved]
  - Fatigue [Unknown]
  - Dry eye [Unknown]
  - Contusion [Unknown]
  - Asthenia [Unknown]
  - Neuropathy peripheral [Unknown]
  - Drug ineffective [Unknown]
  - Gait inability [Recovered/Resolved]
  - Osteitis [Unknown]
  - Joint stiffness [Unknown]
  - Muscle spasms [Unknown]
  - Joint dislocation [Unknown]
  - Bone density decreased [Unknown]
  - Nephrolithiasis [Unknown]
  - Visual impairment [Unknown]
  - Ligament injury [Unknown]
  - Arthralgia [Unknown]
  - Bone pain [Unknown]
  - Coma [Unknown]
  - Seizure [Unknown]
  - Skin disorder [Unknown]
  - Weight decreased [Unknown]
  - Osteoarthritis [Unknown]
  - Headache [Unknown]
  - Dizziness [Not Recovered/Not Resolved]
  - Hypoaesthesia [Not Recovered/Not Resolved]
  - Tremor [Not Recovered/Not Resolved]
  - Muscle twitching [Unknown]
  - Dry skin [Unknown]
  - Cancer surgery [Unknown]
  - Sleep disorder due to general medical condition, insomnia type [Recovered/Resolved]
  - Neck pain [Unknown]
  - Joint noise [Not Recovered/Not Resolved]
  - Body height decreased [Not Recovered/Not Resolved]
  - Bone cyst [Unknown]

NARRATIVE: CASE EVENT DATE: 2016
